FAERS Safety Report 8219733-4 (Version None)
Quarter: 2012Q1

REPORT INFORMATION
  Report Type: 
  Country: None (occurrence: None)
  Receive Date: 20120319
  Receipt Date: 20120306
  Transmission Date: 20120608
  Serious: Yes (Death, Hospitalization, Other)
  Sender: FDA-Public Use
  Company Number: CA-ABBOTT-12P-028-0910954-00

PATIENT
  Sex: Female

DRUGS (14)
  1. LIPITOR [Concomitant]
     Dates: start: 20060101
  2. PANTOPRAZOLE SODIUM [Concomitant]
     Dates: start: 20060101
  3. HUMIRA [Suspect]
     Indication: CROHN'S DISEASE
     Route: 058
     Dates: start: 20120217, end: 20120217
  4. PLAVIX [Concomitant]
     Dates: start: 20060101
  5. LIPITOR [Concomitant]
     Indication: PRODUCT USED FOR UNKNOWN INDICATION
     Route: 048
     Dates: end: 20120229
  6. PLAVIX [Concomitant]
     Indication: PRODUCT USED FOR UNKNOWN INDICATION
     Dosage: ILLEGIBLE DOSE, ONCE DAILY
     Route: 048
     Dates: end: 20120229
  7. AZATHIOPRINE [Concomitant]
     Indication: PRODUCT USED FOR UNKNOWN INDICATION
     Route: 048
     Dates: end: 20120229
  8. PERINDOPRIL ERBUMINE [Concomitant]
     Indication: PRODUCT USED FOR UNKNOWN INDICATION
     Route: 048
     Dates: end: 20120229
  9. PANTOPRAZOLE SODIUM [Concomitant]
     Indication: PRODUCT USED FOR UNKNOWN INDICATION
     Route: 048
     Dates: end: 20120229
  10. IMURAN [Concomitant]
     Indication: PRODUCT USED FOR UNKNOWN INDICATION
     Dates: start: 20070101
  11. REMICADE [Concomitant]
     Indication: PRODUCT USED FOR UNKNOWN INDICATION
     Dates: start: 20060101
  12. PERINDOPRIL ERBUMINE [Concomitant]
     Dates: start: 20060101
  13. CELEXA [Concomitant]
     Indication: PRODUCT USED FOR UNKNOWN INDICATION
     Dates: start: 20060101
  14. WARFARIN SODIUM [Concomitant]
     Indication: PRODUCT USED FOR UNKNOWN INDICATION
     Dates: start: 20060101

REACTIONS (8)
  - METASTATIC NEOPLASM [None]
  - LUNG CANCER METASTATIC [None]
  - PNEUMONIA [None]
  - FATIGUE [None]
  - HEPATIC NEOPLASM MALIGNANT [None]
  - MALAISE [None]
  - LUNG NEOPLASM MALIGNANT [None]
  - DEATH [None]
